FAERS Safety Report 8111896-4 (Version None)
Quarter: 2012Q1

REPORT INFORMATION
  Report Type: 
  Country: None (occurrence: None)
  Receive Date: 20120203
  Receipt Date: 20110112
  Transmission Date: 20120608
  Serious: No
  Sender: FDA-Public Use
  Company Number: US-GLAXOSMITHKLINE-A0905433A

PATIENT
  Age: 40 Year
  Sex: Male

DRUGS (3)
  1. OXYCODONE HCL [Concomitant]
  2. WARFARIN SODIUM [Concomitant]
  3. ARIXTRA [Suspect]
     Indication: PULMONARY EMBOLISM
     Dosage: 7.5MG PER DAY
     Route: 058
     Dates: start: 20101230, end: 20110105

REACTIONS (8)
  - GAIT DISTURBANCE [None]
  - DIZZINESS [None]
  - SENSATION OF HEAVINESS [None]
  - DYSARTHRIA [None]
  - PALPITATIONS [None]
  - CONFUSIONAL STATE [None]
  - DISORIENTATION [None]
  - ASTHENIA [None]
